FAERS Safety Report 4414961-8 (Version None)
Quarter: 2004Q3

REPORT INFORMATION
  Report Type: 
  Country: None (occurrence: None)
  Receive Date: 20040803
  Receipt Date: 20040803
  Transmission Date: 20050211
  Serious: Yes (Hospitalization)
  Sender: FDA-Public Use
  Company Number: None

PATIENT
  Age: 66 Year
  Sex: Female

DRUGS (3)
  1. GEMCITABINE [Suspect]
     Indication: NON-SMALL CELL LUNG CANCER
  2. CARBOPLATIN [Suspect]
  3. CELECOXIB [Suspect]

REACTIONS (8)
  - COLITIS ISCHAEMIC [None]
  - DIVERTICULUM [None]
  - GASTRITIS [None]
  - HAEMATOCHEZIA [None]
  - HAEMOGLOBIN DECREASED [None]
  - INFECTION [None]
  - NEUTROPENIA [None]
  - PANCYTOPENIA [None]
